FAERS Safety Report 11018943 (Version 2)
Quarter: 2015Q2

REPORT INFORMATION
  Report Type: Spontaneous
  Country: US (occurrence: US)
  Receive Date: 20150412
  Receipt Date: 20150525
  Transmission Date: 20150821
  Serious: No
  Sender: FDA-Public Use
  Company Number: US-JNJFOC-20121005450

PATIENT
  Sex: Male
  Weight: 99.34 kg

DRUGS (9)
  1. TRAMADOL [Concomitant]
     Active Substance: TRAMADOL
     Indication: BURNING SENSATION
     Route: 048
     Dates: start: 2000
  2. TRAMADOL [Concomitant]
     Active Substance: TRAMADOL
     Indication: BLADDER PAIN
     Route: 048
     Dates: start: 2000
  3. GABAPENTIN. [Concomitant]
     Active Substance: GABAPENTIN
     Indication: POLLAKIURIA
     Route: 065
     Dates: start: 2000
  4. ATENOLOL. [Concomitant]
     Active Substance: ATENOLOL
     Route: 065
     Dates: start: 2000
  5. ELMIRON [Concomitant]
     Active Substance: PENTOSAN POLYSULFATE SODIUM
     Indication: CYSTITIS INTERSTITIAL
     Route: 048
     Dates: start: 2000
  6. TRAMADOL [Concomitant]
     Active Substance: TRAMADOL
     Indication: POLLAKIURIA
     Route: 048
     Dates: start: 2000
  7. LEVAQUIN [Suspect]
     Active Substance: LEVOFLOXACIN
     Indication: PRODUCT USED FOR UNKNOWN INDICATION
     Route: 048
     Dates: start: 2004
  8. GABAPENTIN. [Concomitant]
     Active Substance: GABAPENTIN
     Indication: BURNING SENSATION
     Route: 065
     Dates: start: 2000
  9. UNSPECIFIED CARDIAC MEDICINE [Concomitant]
     Active Substance: UNSPECIFIED INGREDIENT
     Indication: CARDIAC DISORDER
     Route: 065
     Dates: start: 2000

REACTIONS (3)
  - Gastric disorder [Recovered/Resolved]
  - Overdose [Recovered/Resolved]
  - Dysbacteriosis [Recovered/Resolved]

NARRATIVE: CASE EVENT DATE: 2004
